FAERS Safety Report 5892675-5 (Version None)
Quarter: 2008Q3

REPORT INFORMATION
  Report Type: 
  Country: None (occurrence: None)
  Receive Date: 20080923
  Receipt Date: 20080915
  Transmission Date: 20090109
  Serious: Yes (Other)
  Sender: FDA-Public Use
  Company Number: PHHY2008GB16027

PATIENT
  Sex: Male

DRUGS (2)
  1. CLOZARIL [Suspect]
     Indication: SCHIZOPHRENIA
     Dosage: 300 MG/DAY
     Route: 048
     Dates: start: 20051003
  2. CITALOPRAM HYDROBROMIDE [Concomitant]
     Dosage: 40 MG/DAY
     Route: 048

REACTIONS (2)
  - MEAN CELL VOLUME INCREASED [None]
  - OROPHARYNGEAL DISCOMFORT [None]
